FAERS Safety Report 19879365 (Version 4)
Quarter: 2022Q1

REPORT INFORMATION
  Report Type: Spontaneous
  Country: CZ (occurrence: CZ)
  Receive Date: 20210924
  Receipt Date: 20220207
  Transmission Date: 20220423
  Serious: Yes (Hospitalization, Other)
  Sender: FDA-Public Use
  Company Number: CZ-SA-SAC20210923000386

PATIENT
  Age: 23 Year
  Sex: Male
  Weight: 58 kg

DRUGS (1)
  1. LEMTRADA [Suspect]
     Active Substance: ALEMTUZUMAB
     Indication: Multiple sclerosis
     Dosage: UNK
     Route: 042
     Dates: start: 202012, end: 202012

REACTIONS (18)
  - Hypokalaemia [Unknown]
  - Autoimmune haemolytic anaemia [Recovered/Resolved]
  - Hyperbilirubinaemia [Unknown]
  - Yellow skin [Unknown]
  - Jaundice [Unknown]
  - Ocular icterus [Unknown]
  - Blood bilirubin increased [Unknown]
  - Faeces pale [Unknown]
  - Chromaturia [Unknown]
  - Fatigue [Unknown]
  - Haemoglobin decreased [Unknown]
  - Immune thrombocytopenia [Recovering/Resolving]
  - Extravasation blood [Unknown]
  - Platelet count abnormal [Unknown]
  - Mean platelet volume abnormal [Unknown]
  - Petechiae [Unknown]
  - Sideroblastic anaemia [Unknown]
  - Left ventricular hypertrophy [Unknown]

NARRATIVE: CASE EVENT DATE: 20210101
